FAERS Safety Report 12753053 (Version 2)
Quarter: 2017Q2

REPORT INFORMATION
  Report Type: Spontaneous
  Country: US (occurrence: US)
  Receive Date: 20160916
  Receipt Date: 20170621
  Transmission Date: 20170830
  Serious: No
  Sender: FDA-Public Use
  Company Number: US-TEVA-693347USA

PATIENT
  Age: 37 Year
  Sex: Female

DRUGS (7)
  1. COPAXONE [Suspect]
     Active Substance: GLATIRAMER ACETATE
     Route: 058
  2. AMITRIPTYLINE [Concomitant]
     Active Substance: AMITRIPTYLINE
  3. FINASTERIDE. [Concomitant]
     Active Substance: FINASTERIDE
  4. BACLOFEN. [Concomitant]
     Active Substance: BACLOFEN
  5. COPAXONE [Suspect]
     Active Substance: GLATIRAMER ACETATE
     Indication: MULTIPLE SCLEROSIS
     Dosage: 20 MILLIGRAM DAILY;
     Route: 058
     Dates: start: 20130730
  6. KEPPRA [Concomitant]
     Active Substance: LEVETIRACETAM
  7. SPIRONOLACTONE. [Concomitant]
     Active Substance: SPIRONOLACTONE

REACTIONS (2)
  - Depression [Not Recovered/Not Resolved]
  - Fatigue [Not Recovered/Not Resolved]

NARRATIVE: CASE EVENT DATE: 201608
